FAERS Safety Report 4905155-8 (Version None)
Quarter: 2006Q1

REPORT INFORMATION
  Report Type: 
  Country: None (occurrence: None)
  Receive Date: 20060208
  Receipt Date: 20051116
  Transmission Date: 20060701
  Serious: No
  Sender: FDA-Public Use
  Company Number: 1607

PATIENT
  Sex: Male

DRUGS (1)
  1. PAROXETINE HCL [Suspect]
     Indication: DEPRESSION
     Route: 048

REACTIONS (1)
  - BLOOD PRESSURE INCREASED [None]
